FAERS Safety Report 21927341 (Version 1)
Quarter: 2023Q1

REPORT INFORMATION
  Report Type: Spontaneous
  Country: CH (occurrence: CH)
  Receive Date: 20230130
  Receipt Date: 20230130
  Transmission Date: 20230417
  Serious: Yes (Hospitalization, Other)
  Sender: FDA-Public Use
  Company Number: None

PATIENT
  Age: 37 Year
  Sex: Female

DRUGS (23)
  1. KETALAR [Suspect]
     Active Substance: KETAMINE HYDROCHLORIDE
     Dosage: 1 DF
     Route: 042
     Dates: start: 20220721, end: 20220803
  2. PIPERACILLIN SODIUM\TAZOBACTAM SODIUM [Suspect]
     Active Substance: PIPERACILLIN SODIUM\TAZOBACTAM SODIUM
     Dosage: 1 DF
     Route: 042
     Dates: start: 20220724, end: 20220803
  3. DIFLUCAN [Suspect]
     Active Substance: FLUCONAZOLE
     Dosage: 1 DF
     Route: 042
     Dates: start: 20220719, end: 20220719
  4. PROPOFOL [Suspect]
     Active Substance: PROPOFOL
     Dosage: 1 DF
     Route: 042
     Dates: start: 20220720, end: 20220806
  5. YESCARTA [Suspect]
     Active Substance: AXICABTAGENE CILOLEUCEL
     Indication: Lymphocyte adoptive therapy
     Dosage: 1 DF
     Route: 042
     Dates: start: 20220722, end: 20220722
  6. DAFALGAN [Suspect]
     Active Substance: ACETAMINOPHEN
     Dosage: 1 DF
     Dates: start: 20220715, end: 20220808
  7. CIMETIDINE [Suspect]
     Active Substance: CIMETIDINE
     Dosage: 1 DF
     Route: 042
     Dates: start: 20220721, end: 20220721
  8. ACTEMRA [Suspect]
     Active Substance: TOCILIZUMAB
     Dosage: 1 DF
     Route: 042
     Dates: start: 20220723, end: 20220725
  9. ERYTHROMYCIN [Suspect]
     Active Substance: ERYTHROMYCIN
     Dosage: 1 DF
     Route: 042
     Dates: start: 20220726, end: 20220729
  10. METAMIZOLE [Concomitant]
     Active Substance: METAMIZOLE
     Dosage: WHEN LEAVING THE HOSPITAL ON 26SEP2022 UNTIL FURTHER NOTICE
     Route: 065
     Dates: start: 20220926
  11. DEXAMETHASONE [Concomitant]
     Active Substance: DEXAMETHASONE
     Dosage: FOR DISCHARGE FROM HOSPITAL ON 26SEP2022 UNTIL FURTHER NOTICE
     Route: 065
     Dates: start: 20220926
  12. BACTRIM [Concomitant]
     Active Substance: SULFAMETHOXAZOLE\TRIMETHOPRIM
     Dosage: WHEN LEAVING HOSPITAL ON 26SEP2022 UNTIL FURTHER NOTICE
     Route: 065
     Dates: start: 20220926
  13. NEXIUM [Concomitant]
     Active Substance: ESOMEPRAZOLE MAGNESIUM
     Dosage: FOR HOSPITAL DISCHARGE ON 26SEP2022 UNTIL FURTHER NOTICE
     Route: 065
     Dates: start: 20220926
  14. TOPAMAX [Concomitant]
     Active Substance: TOPIRAMATE
     Dosage: IF YOU LEAVE THE HOSPITAL ON 26SEP2022 UNTIL FURTHER NOTICE
     Route: 065
     Dates: start: 20220926
  15. ESCITALOPRAM OXALATE [Concomitant]
     Active Substance: ESCITALOPRAM OXALATE
     Dosage: FOR HOSPITAL DISCHARGE ON 26SEP2022 UNTIL FURTHER NOTICE
     Route: 065
     Dates: start: 20220926
  16. LACOSAMIDUM [Concomitant]
     Dosage: IF YOU LEAVE THE HOSPITAL ON 26SEP2022 UNTIL FURTHER NOTICE
     Route: 065
     Dates: start: 20220926
  17. CLONAZEPAM [Concomitant]
     Active Substance: CLONAZEPAM
     Dosage: 1 DF
     Route: 065
     Dates: start: 20220720, end: 20220720
  18. ONDANSETRON [Concomitant]
     Active Substance: ONDANSETRON
     Dosage: IF YOU LEAVE THE HOSPITAL ON 26SEP2022 UNTIL FURTHER NOTICE
     Route: 065
     Dates: start: 20220926
  19. ZOLPIDEM [Concomitant]
     Active Substance: ZOLPIDEM TARTRATE
     Dosage: 1 DF
     Route: 065
     Dates: start: 20220715, end: 20220719
  20. CLEMASTINE [Concomitant]
     Active Substance: CLEMASTINE
     Dosage: 1 DF
     Route: 065
     Dates: start: 20220719, end: 20220719
  21. BRIVIACT [Concomitant]
     Active Substance: BRIVARACETAM
     Dosage: UPON DISCHARGE FROM HOSPITAL ON 26SEP2022 UNTIL FURTHER NOTICE
     Route: 065
     Dates: start: 20220926
  22. FYCOMPA [Concomitant]
     Active Substance: PERAMPANEL
     Dosage: FOR HOSPITAL DISCHARGE ON 26SEP2022 UNTIL FURTHER NOTICE
     Route: 065
     Dates: start: 20220926
  23. OLANZAPINE [Concomitant]
     Active Substance: OLANZAPINE
     Dosage: 1 DF
     Route: 065
     Dates: start: 20220716, end: 20220720

REACTIONS (4)
  - Drug-induced liver injury [Recovering/Resolving]
  - Pancreatitis [Recovering/Resolving]
  - Leukoencephalopathy [Not Recovered/Not Resolved]
  - Cytokine release syndrome [Recovering/Resolving]

NARRATIVE: CASE EVENT DATE: 20220724
